FAERS Safety Report 16427097 (Version 1)
Quarter: 2019Q2

REPORT INFORMATION
  Report Type: Spontaneous
  Country: US (occurrence: US)
  Receive Date: 20190613
  Receipt Date: 20190613
  Transmission Date: 20190711
  Serious: Yes (Hospitalization)
  Sender: FDA-Public Use
  Company Number: US-TEVA-2019-US-1061401

PATIENT
  Age: 57 Year
  Sex: Male

DRUGS (6)
  1. RISPERIDONE. [Interacting]
     Active Substance: RISPERIDONE
     Route: 048
  2. CLOZAPINE. [Interacting]
     Active Substance: CLOZAPINE
     Indication: SCHIZOPHRENIA
     Route: 065
  3. RISPERIDONE. [Suspect]
     Active Substance: RISPERIDONE
     Indication: SCHIZOPHRENIA
     Dosage: EVERY 2 WEEKS
     Route: 030
  4. SERTRALINE [Concomitant]
     Active Substance: SERTRALINE HYDROCHLORIDE
     Indication: AFFECTIVE DISORDER
     Dosage: AT BEDTIME
     Route: 065
  5. RISPERIDONE. [Interacting]
     Active Substance: RISPERIDONE
     Dosage: AT BEDTIME
     Route: 048
  6. LORAZEPAM. [Concomitant]
     Active Substance: LORAZEPAM
     Indication: ANXIETY
     Route: 065

REACTIONS (4)
  - Myoclonus [Recovered/Resolved]
  - Dysphemia [Recovered/Resolved]
  - Drop attacks [Recovered/Resolved]
  - Drug interaction [Recovered/Resolved]
